FAERS Safety Report 7991282-8 (Version None)
Quarter: 2011Q4

REPORT INFORMATION
  Report Type: 
  Country: None (occurrence: None)
  Receive Date: 20111219
  Receipt Date: 20111214
  Transmission Date: 20120403
  Serious: Yes (Hospitalization, Other)
  Sender: FDA-Public Use
  Company Number: US-MERCK-1011USA03225

PATIENT
  Age: 64 Year
  Sex: Female
  Weight: 77 kg

DRUGS (7)
  1. FOSAMAX [Suspect]
     Indication: OSTEOPENIA
     Route: 048
     Dates: start: 19951001, end: 20010201
  2. FOSAMAX PLUS D [Suspect]
     Route: 048
     Dates: start: 20061201, end: 20090101
  3. FOSAMAX [Suspect]
     Indication: OSTEOPOROSIS PROPHYLAXIS
     Route: 048
     Dates: start: 19951001, end: 20010201
  4. FOSAMAX [Suspect]
     Route: 065
     Dates: start: 20010201, end: 20061026
  5. FOSAMAX [Suspect]
     Route: 065
     Dates: start: 20010201, end: 20061026
  6. BONIVA [Suspect]
     Indication: OSTEOPENIA
     Route: 048
     Dates: start: 20061026, end: 20061226
  7. FOSAMAX PLUS D [Suspect]
     Indication: OSTEOPENIA
     Route: 048
     Dates: start: 20060101, end: 20061001

REACTIONS (24)
  - FALL [None]
  - GALLBLADDER DISORDER [None]
  - UPPER LIMB FRACTURE [None]
  - SCIATICA [None]
  - FEMUR FRACTURE [None]
  - LUNG NEOPLASM MALIGNANT [None]
  - LIPIDS INCREASED [None]
  - GASTROOESOPHAGEAL REFLUX DISEASE [None]
  - EMPHYSEMA [None]
  - PANCYTOPENIA [None]
  - FRACTURE DELAYED UNION [None]
  - GAIT DISTURBANCE [None]
  - CATARACT [None]
  - BLOOD CHOLESTEROL INCREASED [None]
  - OBSTRUCTIVE AIRWAYS DISORDER [None]
  - GROIN PAIN [None]
  - HYPOTHYROIDISM [None]
  - LOW TURNOVER OSTEOPATHY [None]
  - ORTHOSTATIC HYPOTENSION [None]
  - CHRONIC OBSTRUCTIVE PULMONARY DISEASE [None]
  - ROTATOR CUFF SYNDROME [None]
  - HYPERLIPIDAEMIA [None]
  - HAEMORRHAGIC ANAEMIA [None]
  - BLOOD COUNT ABNORMAL [None]
